FAERS Safety Report 5315208-0 (Version None)
Quarter: 2007Q2

REPORT INFORMATION
  Report Type: 
  Country: None (occurrence: None)
  Receive Date: 20070502
  Receipt Date: 20070426
  Transmission Date: 20071010
  Serious: Yes (Hospitalization)
  Sender: FDA-Public Use
  Company Number: FR-MERCK-0704FRA00092

PATIENT
  Age: 84 Year
  Sex: Male

DRUGS (10)
  1. COSOPT [Suspect]
     Route: 047
  2. RAMIPRIL [Suspect]
     Route: 048
     Dates: end: 20061201
  3. WARFARIN SODIUM [Suspect]
     Route: 048
     Dates: end: 20070207
  4. CLORAZEPATE DIPOTASSIUM [Suspect]
     Route: 048
  5. BUMETANIDE [Suspect]
     Route: 048
  6. BISOPROLOL FUMARATE [Suspect]
     Route: 048
  7. INSULIN GLARGINE [Suspect]
     Indication: DIABETES MELLITUS
     Route: 058
  8. DEXCHLORPHENIRAMINE MALEATE [Suspect]
     Route: 065
  9. PARAFFIN [Suspect]
     Route: 065
  10. LISINOPRIL [Suspect]
     Route: 048
     Dates: start: 20061201

REACTIONS (2)
  - DERMATITIS EXFOLIATIVE [None]
  - PRURITUS [None]
